FAERS Safety Report 5708173-5 (Version None)
Quarter: 2008Q2

REPORT INFORMATION
  Report Type: 
  Country: None (occurrence: None)
  Receive Date: 20080417
  Receipt Date: 20080414
  Transmission Date: 20081010
  Serious: Yes (Disabling)
  Sender: FDA-Public Use
  Company Number: B0516392A

PATIENT
  Age: 46 Year
  Sex: Female
  Weight: 49 kg

DRUGS (55)
  1. ALKERAN [Suspect]
     Indication: ALLOGENIC BONE MARROW TRANSPLANTATION THERAPY
     Dosage: 130MG PER DAY
     Route: 042
     Dates: start: 20070312, end: 20070313
  2. LIDOCAINE [Suspect]
     Route: 065
     Dates: start: 20070325, end: 20070408
  3. FLUDARA [Concomitant]
     Indication: ALLOGENIC BONE MARROW TRANSPLANTATION THERAPY
     Dosage: 36MG PER DAY
     Dates: start: 20070309, end: 20070313
  4. NEUTROGIN [Concomitant]
     Dates: start: 20070320, end: 20070404
  5. SANDIMMUNE [Concomitant]
     Indication: IMMUNOSUPPRESSION
     Dosage: 150MG PER DAY
     Route: 042
     Dates: start: 20070314
  6. UNKNOWN DRUG [Concomitant]
     Route: 048
     Dates: start: 20070301, end: 20070301
  7. POSTERISAN [Concomitant]
     Route: 061
     Dates: start: 20070301, end: 20070315
  8. UNKNOWN DRUG [Concomitant]
     Route: 061
     Dates: start: 20070314, end: 20070314
  9. RHYTHMY [Concomitant]
     Dosage: 2MG PER DAY
     Route: 048
     Dates: start: 20070301, end: 20070309
  10. MYSLEE [Concomitant]
     Dosage: 10MG PER DAY
     Route: 048
     Dates: start: 20070301
  11. NEORAL [Concomitant]
     Route: 048
     Dates: start: 20070301
  12. PROGRAF [Concomitant]
     Dosage: 3.5MG TWICE PER DAY
     Route: 048
     Dates: start: 20070304, end: 20070304
  13. ISODINE GARGLE [Concomitant]
     Route: 065
     Dates: start: 20070305
  14. UNKNOWN DRUG [Concomitant]
     Dates: start: 20070307
  15. UNKNOWN DRUG [Concomitant]
     Route: 048
     Dates: start: 20070308, end: 20070406
  16. NYSTATIN [Concomitant]
     Route: 048
     Dates: start: 20070308
  17. ZOVIRAX [Concomitant]
     Route: 048
     Dates: start: 20070308
  18. ISCOTIN [Concomitant]
     Route: 048
     Dates: start: 20070308
  19. GLYSENNID [Concomitant]
     Route: 048
     Dates: start: 20070312, end: 20070322
  20. MAGMITT [Concomitant]
     Dosage: 660MG TWICE PER DAY
     Route: 048
     Dates: start: 20070314, end: 20070321
  21. LOXONIN [Concomitant]
     Route: 048
     Dates: start: 20070314, end: 20070415
  22. SELBEX [Concomitant]
     Route: 048
     Dates: start: 20070314, end: 20070415
  23. URSO 250 [Concomitant]
     Route: 048
     Dates: start: 20070315
  24. ULCERLMIN [Concomitant]
     Route: 048
     Dates: start: 20070323, end: 20070407
  25. LIDOCAINE [Concomitant]
     Dosage: 100ML PER DAY
     Route: 048
     Dates: start: 20070323, end: 20070323
  26. AZUNOL [Concomitant]
     Route: 065
     Dates: start: 20070323
  27. ELASE [Concomitant]
     Route: 065
     Dates: start: 20070324
  28. GENTACIN [Concomitant]
     Route: 061
     Dates: start: 20070328, end: 20070328
  29. UNKNOWN DRUG [Concomitant]
     Route: 065
     Dates: start: 20070329, end: 20070411
  30. CRAVIT [Concomitant]
     Dosage: 2.5ML TWICE PER DAY
     Route: 061
     Dates: start: 20070329, end: 20070404
  31. INTEBAN [Concomitant]
     Route: 061
     Dates: start: 20070404, end: 20070415
  32. POLYMYXIN B SULFATE [Concomitant]
     Dosage: 100IU THREE TIMES PER DAY
     Route: 048
     Dates: start: 20070407, end: 20070420
  33. LOPEMIN [Concomitant]
     Dosage: 1MG PER DAY
     Route: 048
     Dates: start: 20070413, end: 20070413
  34. SOLDEM 3A [Concomitant]
     Dosage: 1000ML PER DAY
     Route: 042
     Dates: start: 20070307, end: 20070308
  35. ISOTONIC SODIUM CHLORIDE SOLUTION [Concomitant]
     Route: 042
     Dates: start: 20070309, end: 20070418
  36. KYTRIL [Concomitant]
     Route: 042
     Dates: start: 20070309, end: 20070313
  37. UNKNOWN DRUG [Concomitant]
     Route: 042
     Dates: start: 20070309, end: 20070413
  38. UNKNOWN DRUG [Concomitant]
     Dosage: 500ML PER DAY
     Route: 042
     Dates: start: 20070309, end: 20070320
  39. UNKNOWN DRUG [Concomitant]
     Dosage: 903ML PER DAY
     Route: 042
     Dates: start: 20070309, end: 20070418
  40. ELEMENMIC [Concomitant]
     Dosage: 2ML PER DAY
     Route: 042
     Dates: start: 20070309, end: 20070418
  41. PRIMPERAN INJ [Concomitant]
     Route: 042
     Dates: start: 20070309, end: 20070320
  42. UNKNOWN DRUG [Concomitant]
     Dosage: 1003ML PER DAY
     Route: 042
     Dates: start: 20070314, end: 20070317
  43. ISOTONIC SODIUM CHLORIDE SOLUTION [Concomitant]
     Route: 042
     Dates: start: 20070314, end: 20070424
  44. MAXIPIME [Concomitant]
     Route: 042
     Dates: start: 20070314, end: 20070424
  45. SOLU-CORTEF [Concomitant]
     Route: 042
     Dates: start: 20070315, end: 20070416
  46. HAPTOGLOBIN [Concomitant]
     Dosage: 2000IU PER DAY
     Route: 042
     Dates: start: 20070315, end: 20070315
  47. ISOTONIC SODIUM CHLORIDE SOLUTION [Concomitant]
     Dosage: 20ML PER DAY
     Route: 042
     Dates: start: 20070316, end: 20070321
  48. METHOTREXATE [Concomitant]
     Route: 042
     Dates: start: 20070316, end: 20070321
  49. HEPARIN SODIUM [Concomitant]
     Route: 042
     Dates: start: 20070316, end: 20070426
  50. FUROSEMIDE [Concomitant]
     Route: 042
     Dates: start: 20070316, end: 20070407
  51. UNKNOWN DRUG [Concomitant]
     Dosage: 1103ML PER DAY
     Route: 042
     Dates: start: 20070318, end: 20070404
  52. UNKNOWN DRUG [Concomitant]
     Dosage: 1000IU PER DAY
     Route: 042
     Dates: start: 20070321, end: 20070408
  53. MEROPEN [Concomitant]
     Route: 042
     Dates: start: 20070324, end: 20070409
  54. MEDIJECT K [Concomitant]
     Dosage: 20MEQ PER DAY
     Route: 042
     Dates: start: 20070402, end: 20070406
  55. UNKNOWN DRUG [Concomitant]
     Dosage: 5G PER DAY
     Route: 042
     Dates: start: 20070404, end: 20070404

REACTIONS (1)
  - CARDIAC FAILURE CONGESTIVE [None]
